FAERS Safety Report 12850945 (Version 2)
Quarter: 2016Q4

REPORT INFORMATION
  Report Type: Report from Study
  Country: JP (occurrence: JP)
  Receive Date: 20161015
  Receipt Date: 20161118
  Transmission Date: 20170207
  Serious: Yes (Hospitalization, Other)
  Sender: FDA-Public Use
  Company Number: JP-AMGEN-JPNCT2016142628

PATIENT
  Age: 49 Year
  Sex: Male

DRUGS (8)
  1. OXALIPLATIN. [Concomitant]
     Active Substance: OXALIPLATIN
     Dosage: UNK UNK, Q2WEEKS
     Route: 041
     Dates: start: 20161019
  2. CALCIUM LEVOFOLINATE [Concomitant]
     Active Substance: LEVOLEUCOVORIN CALCIUM
     Dosage: UNK UNK, Q2WEEKS
     Route: 041
     Dates: start: 20161019
  3. CALCIUM LEVOFOLINATE [Concomitant]
     Active Substance: LEVOLEUCOVORIN CALCIUM
     Indication: RECTOSIGMOID CANCER
     Dosage: UNK UNK, Q2WEEKS
     Route: 041
     Dates: start: 20160927, end: 20160927
  4. OXALIPLATIN. [Concomitant]
     Active Substance: OXALIPLATIN
     Indication: RECTOSIGMOID CANCER
     Dosage: UNK UNK, Q2WEEKS
     Route: 041
     Dates: start: 20160927, end: 20160927
  5. 5-FU                               /00098801/ [Concomitant]
     Active Substance: FLUOROURACIL
     Dosage: UNK UNK, Q2WEEKS
     Route: 041
     Dates: start: 20161019
  6. PANITUMUMAB [Suspect]
     Active Substance: PANITUMUMAB
     Indication: RECTOSIGMOID CANCER
     Dosage: UNK, Q2WK
     Route: 041
     Dates: start: 20160927, end: 20160927
  7. PANITUMUMAB [Suspect]
     Active Substance: PANITUMUMAB
     Dosage: UNK, Q2WK
     Route: 041
     Dates: start: 20161019
  8. 5-FU                               /00098801/ [Concomitant]
     Active Substance: FLUOROURACIL
     Indication: RECTOSIGMOID CANCER
     Dosage: UNK UNK, Q2WEEKS
     Route: 042
     Dates: start: 20160927, end: 20160927

REACTIONS (1)
  - Enterocolitis [Recovered/Resolved]

NARRATIVE: CASE EVENT DATE: 20161007
